FAERS Safety Report 25463224 (Version 2)
Quarter: 2025Q3

REPORT INFORMATION
  Report Type: Report from Study
  Country: AU (occurrence: AU)
  Receive Date: 20250620
  Receipt Date: 20250905
  Transmission Date: 20251021
  Serious: Yes (Hospitalization)
  Sender: PFIZER
  Company Number: AU-PFIZER INC-PV202500072096

PATIENT
  Age: 15 Year
  Sex: Female
  Weight: 66 kg

DRUGS (36)
  1. DAUNORUBICIN [Suspect]
     Active Substance: DAUNORUBICIN
     Indication: B-cell type acute leukaemia
     Dates: start: 20250424
  2. VINCRISTINE [Suspect]
     Active Substance: VINCRISTINE
     Indication: B-cell type acute leukaemia
     Dates: start: 20250424
  3. ONCASPAR [Suspect]
     Active Substance: PEGASPARGASE
     Indication: B-cell type acute leukaemia
     Dates: start: 20250427
  4. CYTARABINE [Suspect]
     Active Substance: CYTARABINE
     Indication: B-cell type acute leukaemia
     Dates: start: 20250424
  5. ALPELISIB [Suspect]
     Active Substance: ALPELISIB
     Indication: Lymphatic malformation
     Dosage: 50 MG, QD, BYL719 COMP-BYL+PROS+FCTAB+I
     Route: 048
     Dates: start: 20240103
  6. NUROFEN MELTLETS [Concomitant]
     Dates: start: 2015
  7. LIDOCAINE [Concomitant]
     Active Substance: LIDOCAINE
     Dates: start: 20231206
  8. ALLOPURINOL [Concomitant]
     Active Substance: ALLOPURINOL
     Dates: start: 20250422, end: 20250502
  9. DEXTROSE\SODIUM CHLORIDE [Concomitant]
     Active Substance: DEXTROSE\SODIUM CHLORIDE
     Dates: start: 20250422, end: 20250511
  10. ACETAMINOPHEN [Concomitant]
     Active Substance: ACETAMINOPHEN
     Dates: start: 20250422, end: 20250422
  11. PIPERACILLIN SODIUM\TAZOBACTAM SODIUM [Concomitant]
     Active Substance: PIPERACILLIN SODIUM\TAZOBACTAM SODIUM
     Dates: start: 20250422, end: 20250425
  12. SODIUM CHLORIDE [Concomitant]
     Active Substance: SODIUM CHLORIDE
     Dates: start: 20250422, end: 20250515
  13. MICAFUNGIN [Concomitant]
     Active Substance: MICAFUNGIN SODIUM
     Dates: start: 20250423, end: 20250508
  14. CLONIDINE [Concomitant]
     Active Substance: CLONIDINE
     Dates: start: 20250424, end: 20250424
  15. CYCLIZINE [Concomitant]
     Active Substance: CYCLIZINE
     Dates: start: 20250424, end: 20250425
  16. DEXMEDETOMIDINE [Concomitant]
     Active Substance: DEXMEDETOMIDINE
     Dates: start: 20250424, end: 20250424
  17. DROPERIDOL [Concomitant]
     Active Substance: DROPERIDOL
     Dates: start: 20250424, end: 20250424
  18. FENTANYL [Concomitant]
     Active Substance: FENTANYL
     Dates: start: 20250424, end: 20250424
  19. FOSAPREPITANT [Concomitant]
     Active Substance: FOSAPREPITANT
     Dates: start: 20250424, end: 20250424
  20. FUROSEMIDE [Concomitant]
     Active Substance: FUROSEMIDE
     Dates: start: 20250424, end: 20250429
  21. GOSERELIN [Concomitant]
     Active Substance: GOSERELIN
     Dates: start: 20250424, end: 20250424
  22. LORAZEPAM [Concomitant]
     Active Substance: LORAZEPAM
     Dates: start: 20250424, end: 20250501
  23. METHYLPREDNISOLONE [Concomitant]
     Active Substance: METHYLPREDNISOLONE
     Dates: start: 20250424, end: 20250515
  24. MIDAZOLAM [Concomitant]
     Active Substance: MIDAZOLAM
     Dates: start: 20250424, end: 20250424
  25. ONDANSETRON [Concomitant]
     Active Substance: ONDANSETRON
     Dates: start: 20250424, end: 20250515
  26. OXYCODONE [Concomitant]
     Active Substance: OXYCODONE
     Dates: start: 20250424, end: 20250424
  27. PALONOSETRON [Concomitant]
     Active Substance: PALONOSETRON
     Dates: start: 20250424, end: 20250430
  28. HEPARIN SODIUM [Concomitant]
     Active Substance: HEPARIN SODIUM
     Dates: start: 20250503, end: 20250515
  29. PROPOFOL [Concomitant]
     Active Substance: PROPOFOL
     Dates: start: 20250424, end: 20250424
  30. RANITIDINE [Concomitant]
     Active Substance: RANITIDINE
     Dates: start: 20250425, end: 20250515
  31. METOCLOPRAMIDE [Concomitant]
     Active Substance: METOCLOPRAMIDE
     Dates: start: 20250427
  32. NOVORAPID [Concomitant]
     Active Substance: INSULIN ASPART
     Dates: start: 20250428, end: 20250428
  33. LEVEMIR [Concomitant]
     Active Substance: INSULIN DETEMIR
     Dates: start: 20250428
  34. SULFAMETHOXAZOLE\TRIMETHOPRIM [Concomitant]
     Active Substance: SULFAMETHOXAZOLE\TRIMETHOPRIM
     Dates: start: 20250428, end: 20250514
  35. OLANZAPINE [Concomitant]
     Active Substance: OLANZAPINE
     Dates: start: 20250429, end: 20250429
  36. PREDNISOLONE [Concomitant]
     Active Substance: PREDNISOLONE
     Dates: start: 20250429, end: 20250502

REACTIONS (1)
  - Drug-induced liver injury [Not Recovered/Not Resolved]

NARRATIVE: CASE EVENT DATE: 20250511
